FAERS Safety Report 4730728-5 (Version None)
Quarter: 2005Q3

REPORT INFORMATION
  Report Type: 
  Country: None (occurrence: None)
  Receive Date: 20050725
  Receipt Date: 20050224
  Transmission Date: 20060218
  Serious: No
  Sender: FDA-Public Use
  Company Number: USA050291661

PATIENT
  Age: 59 Year
  Sex: Female

DRUGS (9)
  1. STRATTERA [Suspect]
     Indication: ATTENTION DEFICIT/HYPERACTIVITY DISORDER
     Dosage: 80 MG IN THE MORNING
  2. PRAVACHOL [Concomitant]
  3. COZAAR [Concomitant]
  4. CITRACAL(CALCIUM CITRATE) [Concomitant]
  5. GLUCOSAMINE [Concomitant]
  6. MIRALAX [Concomitant]
  7. EFFEXOR [Concomitant]
  8. AMBIEN [Concomitant]
  9. EXCEDRIN [Concomitant]

REACTIONS (1)
  - INTRAOCULAR PRESSURE INCREASED [None]
